FAERS Safety Report 7397512-8 (Version None)
Quarter: 2011Q2

REPORT INFORMATION
  Report Type: 
  Country: None (occurrence: None)
  Receive Date: 20110406
  Receipt Date: 20110325
  Transmission Date: 20111010
  Serious: Yes (Death, Other)
  Sender: FDA-Public Use
  Company Number: US-PFIZER INC-2011073864

PATIENT
  Sex: Male

DRUGS (11)
  1. PROPOXYPHENE [Suspect]
  2. LORAZEPAM [Suspect]
  3. ZOLOFT [Suspect]
  4. PERCOCET [Suspect]
  5. DOXEPIN HYDROCHLORIDE [Suspect]
  6. EFFEXOR [Suspect]
  7. TRAZODONE [Suspect]
  8. AMBIEN [Suspect]
  9. NORFLEX [Suspect]
  10. VALIUM [Suspect]
  11. METHADONE [Suspect]

REACTIONS (2)
  - TOXICITY TO VARIOUS AGENTS [None]
  - DRUG INTERACTION [None]
